FAERS Safety Report 24151287 (Version 1)
Quarter: 2024Q3

REPORT INFORMATION
  Report Type: Spontaneous
  Country: US (occurrence: US)
  Receive Date: 20240730
  Receipt Date: 20240730
  Transmission Date: 20241016
  Serious: No
  Sender: GLENMARK
  Company Number: US-GLENMARK PHARMACEUTICALS-2023GMK087959

PATIENT

DRUGS (1)
  1. MUPIROCIN [Suspect]
     Active Substance: MUPIROCIN
     Indication: Product used for unknown indication
     Dosage: UNK
     Route: 065
     Dates: start: 202312

REACTIONS (11)
  - Discomfort [Unknown]
  - Throat tightness [Unknown]
  - Bronchial secretion retention [Unknown]
  - Malaise [Unknown]
  - Dysphagia [Unknown]
  - Sleep disorder due to general medical condition, insomnia type [Unknown]
  - Chest discomfort [Unknown]
  - Product prescribing error [Unknown]
  - Expired product administered [Unknown]
  - Drug hypersensitivity [Unknown]
  - Product physical consistency issue [Unknown]

NARRATIVE: CASE EVENT DATE: 20231201
